FAERS Safety Report 8414362-1 (Version None)
Quarter: 2012Q2

REPORT INFORMATION
  Report Type: 
  Country: None (occurrence: None)
  Receive Date: 20120605
  Receipt Date: 20120601
  Transmission Date: 20120825
  Serious: Yes (Death, Life-Threatening, Hospitalization)
  Sender: FDA-Public Use
  Company Number: US-B.I. PHARMACEUTICALS,INC./RIDGEFIELD-2012-BP-09281BP

PATIENT
  Age: 75 Year
  Sex: Male
  Weight: 112 kg

DRUGS (2)
  1. ASPIRIN [Concomitant]
  2. PRADAXA [Suspect]
     Indication: ATRIAL FIBRILLATION
     Dosage: 300 MG
     Route: 048
     Dates: start: 20120126, end: 20120206

REACTIONS (8)
  - HAEMORRHAGE [None]
  - ACUTE RESPIRATORY FAILURE [None]
  - AORTIC DISSECTION [None]
  - COAGULOPATHY [None]
  - RENAL FAILURE ACUTE [None]
  - CARDIOGENIC SHOCK [None]
  - DISSEMINATED INTRAVASCULAR COAGULATION [None]
  - METABOLIC ACIDOSIS [None]
